FAERS Safety Report 7383868-9 (Version None)
Quarter: 2011Q1

REPORT INFORMATION
  Report Type: 
  Country: None (occurrence: None)
  Receive Date: 20110330
  Receipt Date: 20110328
  Transmission Date: 20110831
  Serious: Yes (Hospitalization)
  Sender: FDA-Public Use
  Company Number: FR-ABBOTT-11P-056-0714775-00

PATIENT
  Age: 47 Year
  Sex: Female

DRUGS (2)
  1. TEMESTA [Suspect]
     Indication: CONFUSIONAL STATE
     Route: 048
     Dates: start: 20101210
  2. DEPAKOTE [Suspect]
     Indication: CONFUSIONAL STATE
     Route: 048
     Dates: start: 20101210

REACTIONS (5)
  - CONFUSIONAL STATE [None]
  - DELIRIUM [None]
  - INSOMNIA [None]
  - PSYCHOMOTOR HYPERACTIVITY [None]
  - HALLUCINATION [None]
